FAERS Safety Report 10062747 (Version 2)
Quarter: 2014Q2

REPORT INFORMATION
  Report Type: Spontaneous
  Country: AT (occurrence: AT)
  Receive Date: 20140407
  Receipt Date: 20140522
  Transmission Date: 20141212
  Serious: Yes (Disabling)
  Sender: FDA-Public Use
  Company Number: AT-GLAXOSMITHKLINE-B0983336A

PATIENT
  Sex: Male
  Weight: 86 kg

DRUGS (7)
  1. ZOVIRAX EYE OINTMENT [Suspect]
     Indication: HERPES VIRUS INFECTION
     Route: 047
     Dates: start: 20140402, end: 20140404
  2. ANTIBIOTICS [Concomitant]
  3. ANTI INFLAMMATORY DRUG [Concomitant]
  4. OFLOXACIN [Concomitant]
     Dates: start: 20140324, end: 20140419
  5. UNKNOWN DRUG [Concomitant]
     Dates: start: 20140403
  6. GENTEAL [Concomitant]
  7. HYPROMELLOSE [Concomitant]
     Dates: start: 20140404

REACTIONS (9)
  - Blindness [Recovered/Resolved with Sequelae]
  - Eye haemorrhage [Unknown]
  - Skin exfoliation [Recovered/Resolved with Sequelae]
  - Eye pain [Unknown]
  - Lacrimation increased [Unknown]
  - Foreign body in eye [Unknown]
  - Eye swelling [Recovered/Resolved with Sequelae]
  - Corneal erosion [Unknown]
  - Corneal disorder [Unknown]
